FAERS Safety Report 25930981 (Version 2)
Quarter: 2025Q4

REPORT INFORMATION
  Report Type: Spontaneous
  Country: US (occurrence: US)
  Receive Date: 20251016
  Receipt Date: 20251128
  Transmission Date: 20260118
  Serious: No
  Sender: SANOFI AVENTIS
  Company Number: US-SA-2025SA307312

PATIENT
  Age: 69 Year
  Sex: Female

DRUGS (1)
  1. DUPIXENT [Suspect]
     Active Substance: DUPILUMAB
     Indication: Dermatitis atopic
     Dosage: 300 MG, QOW
     Route: 058

REACTIONS (7)
  - Contusion [Not Recovered/Not Resolved]
  - Heart rate increased [Unknown]
  - Palpitations [Unknown]
  - Sleep disorder [Unknown]
  - Injection site haemorrhage [Unknown]
  - Injection site pruritus [Unknown]
  - Injection site bruising [Unknown]
